FAERS Safety Report 21670207 (Version 1)
Quarter: 2022Q4

REPORT INFORMATION
  Report Type: Spontaneous
  Country: FR (occurrence: FR)
  Receive Date: 20221201
  Receipt Date: 20221201
  Transmission Date: 20230113
  Serious: Yes (Life-Threatening, Hospitalization)
  Sender: FDA-Public Use
  Company Number: None

PATIENT
  Age: 12 Week
  Sex: Male

DRUGS (9)
  1. SILDENAFIL [Interacting]
     Active Substance: SILDENAFIL
     Indication: Pulmonary arterial hypertension
     Dosage: UNIT DOSE :   8 MG/KG
     Route: 065
  2. BOSENTAN [Interacting]
     Active Substance: BOSENTAN
     Indication: Pulmonary arterial hypertension
     Dosage: UNIT DOSE :4 MG/KG  , FREQUENCY TIME : 1 DAY , DURATION : 6 DAYS
     Dates: start: 20221013, end: 20221019
  3. BOSENTAN [Interacting]
     Active Substance: BOSENTAN
     Dosage: UNIT DOSE :2 MG/KG  , FREQUENCY TIME : 1 DAY , DURATION : 9 DAYS
     Dates: start: 20221004, end: 20221013
  4. ILOPROST [Concomitant]
     Active Substance: ILOPROST
     Indication: Product used for unknown indication
  5. AMLODIPINE BESYLATE [Concomitant]
     Active Substance: AMLODIPINE BESYLATE
     Indication: Pulmonary arterial hypertension
  6. ZITHROMAX [Concomitant]
     Active Substance: AZITHROMYCIN DIHYDRATE
     Indication: Product used for unknown indication
     Dosage: DURATION : 8 DAYS
     Dates: start: 20221005, end: 20221013
  7. URSODIOL [Concomitant]
     Active Substance: URSODIOL
     Indication: Product used for unknown indication
     Dosage: STRENGTH : 50 MG/ML
  8. SOLUPRED [Concomitant]
     Indication: Product used for unknown indication
     Dosage: DURATION : 8 DAYS
     Dates: start: 20221005, end: 20221013
  9. CLONIDINE [Concomitant]
     Active Substance: CLONIDINE
     Indication: Pulmonary arterial hypertension

REACTIONS (2)
  - Generalised oedema [Recovered/Resolved]
  - Drug interaction [Unknown]

NARRATIVE: CASE EVENT DATE: 20221015
